FAERS Safety Report 22313105 (Version 4)
Quarter: 2023Q2

REPORT INFORMATION
  Report Type: Report from Study
  Country: US (occurrence: US)
  Receive Date: 20230512
  Receipt Date: 20230617
  Transmission Date: 20230722
  Serious: Yes (Other)
  Sender: FDA-Public Use
  Company Number: US-002147023-NVSC2023US105912

PATIENT
  Sex: Female

DRUGS (1)
  1. COSENTYX [Suspect]
     Active Substance: SECUKINUMAB
     Indication: Axial spondyloarthritis
     Dosage: UNK
     Route: 065

REACTIONS (6)
  - Hip fracture [Unknown]
  - Pain [Unknown]
  - Fall [Unknown]
  - Condition aggravated [Unknown]
  - Axial spondyloarthritis [Unknown]
  - Drug ineffective [Unknown]
